FAERS Safety Report 7332314-X (Version None)
Quarter: 2011Q1

REPORT INFORMATION
  Report Type: 
  Country: None (occurrence: None)
  Receive Date: 20110304
  Receipt Date: 20100609
  Transmission Date: 20110831
  Serious: Yes (Hospitalization)
  Sender: FDA-Public Use
  Company Number: A0864136A

PATIENT
  Sex: Female

DRUGS (10)
  1. NAPROXEN [Concomitant]
     Route: 065
  2. SYNTHROID [Concomitant]
     Route: 065
  3. XELODA [Concomitant]
     Route: 065
  4. HYDROCHLOROTHIAZIDE [Concomitant]
     Route: 065
  5. PHOSPHATE [Concomitant]
     Route: 065
  6. TYKERB [Suspect]
     Dosage: 1250MG PER DAY
     Route: 048
     Dates: start: 20100603
  7. BENADRYL [Concomitant]
     Route: 065
  8. UNSPECIFIED MEDICATION [Concomitant]
     Route: 065
  9. SENOKOT [Concomitant]
     Route: 065
  10. ACETAMINOPHEN [Concomitant]
     Route: 065

REACTIONS (3)
  - DIZZINESS [None]
  - GRAND MAL CONVULSION [None]
  - DIARRHOEA [None]
